FAERS Safety Report 7197952-6 (Version None)
Quarter: 2010Q4

REPORT INFORMATION
  Report Type: 
  Country: None (occurrence: None)
  Receive Date: 20101227
  Receipt Date: 20101215
  Transmission Date: 20110411
  Serious: Yes (Other)
  Sender: FDA-Public Use
  Company Number: GB-ROCHE-748702

PATIENT
  Age: 36 Year
  Sex: Female

DRUGS (1)
  1. ORLISTAT [Suspect]
     Route: 048
     Dates: start: 20091201

REACTIONS (1)
  - PALPITATIONS [None]
